FAERS Safety Report 17537479 (Version 1)
Quarter: 2020Q1

REPORT INFORMATION
  Report Type: Spontaneous
  Country: US (occurrence: US)
  Receive Date: 20200313
  Receipt Date: 20200313
  Transmission Date: 20200409
  Serious: No
  Sender: FDA-Public Use
  Company Number: US-VERTEX PHARMACEUTICALS-2020-004771

PATIENT
  Age: 15 Year
  Sex: Male

DRUGS (7)
  1. SYMDEKO [Suspect]
     Active Substance: IVACAFTOR\TEZACAFTOR
     Indication: CYSTIC FIBROSIS
     Dosage: TEZACAFTOR 100MG/ IVACAFTOR 150MG AM, IVACACFTOR 150MG PM
     Route: 048
     Dates: start: 20190307
  2. CYPROHEPTADIN [Concomitant]
     Active Substance: CYPROHEPTADINE HYDROCHLORIDE
  3. ONDANSETRON [Concomitant]
     Active Substance: ONDANSETRON
  4. CALCIUM [Concomitant]
     Active Substance: CALCIUM
  5. ALBUTEROL [SALBUTAMOL] [Concomitant]
     Active Substance: ALBUTEROL
  6. SYMBICORT [Concomitant]
     Active Substance: BUDESONIDE\FORMOTEROL FUMARATE DIHYDRATE
  7. AMOXI CLAV [Concomitant]
     Active Substance: AMOXICILLIN\CLAVULANATE POTASSIUM

REACTIONS (1)
  - Influenza like illness [Unknown]

NARRATIVE: CASE EVENT DATE: 20200302
